FAERS Safety Report 18583315 (Version 3)
Quarter: 2020Q4

REPORT INFORMATION
  Report Type: Report from Study
  Country: None (occurrence: US)
  Receive Date: 20201206
  Receipt Date: 20201209
  Transmission Date: 20210114
  Serious: Yes (Death)
  Sender: FDA-Public Use
  Company Number: US-ABBVIE-20K-163-3678837-00

PATIENT
  Age: 95 Year
  Sex: Female

DRUGS (2)
  1. RINVOQ [Suspect]
     Active Substance: UPADACITINIB
     Indication: SOMATIC DYSFUNCTION
  2. RINVOQ [Suspect]
     Active Substance: UPADACITINIB
     Indication: SPINAL SEGMENTAL DYSFUNCTION
     Dosage: EXTENDED RELEASE
     Route: 048

REACTIONS (1)
  - Death [Fatal]

NARRATIVE: CASE EVENT DATE: 20201126
